FAERS Safety Report 9469776 (Version 2)
Quarter: 2013Q3

REPORT INFORMATION
  Report Type: Report from Study
  Country: AU (occurrence: AU)
  Receive Date: 20130822
  Receipt Date: 20130916
  Transmission Date: 20140515
  Serious: Yes (Death, Hospitalization)
  Sender: FDA-Public Use
  Company Number: PHHY2013AU090659

PATIENT
  Sex: Female

DRUGS (4)
  1. ACLASTA [Suspect]
     Indication: OSTEOPOROTIC FRACTURE
     Dosage: 5 MG, UNK
     Route: 042
     Dates: start: 20120920
  2. HYDROMORPHONE [Concomitant]
     Indication: PAIN
     Dosage: 1 ML, UNK
     Route: 048
     Dates: start: 20121025
  3. SERVENT [Concomitant]
     Indication: DYSPNOEA
     Dosage: UNK UKN, CAL
     Dates: start: 20121025
  4. LACTULOSE [Concomitant]
     Indication: CONSTIPATION
     Dosage: 20 MG, BID
     Route: 048
     Dates: start: 20121021

REACTIONS (5)
  - Dysphagia [Fatal]
  - Kyphosis [Fatal]
  - Asthenia [Fatal]
  - Osteoporosis [Fatal]
  - General physical health deterioration [Unknown]
